FAERS Safety Report 5953675-X (Version None)
Quarter: 2008Q4

REPORT INFORMATION
  Report Type: 
  Country: None (occurrence: None)
  Receive Date: 20081031
  Receipt Date: 20080611
  Transmission Date: 20090506
  Serious: No
  Sender: FDA-Public Use
  Company Number: 2008PV035745

PATIENT
  Age: 53 Year
  Sex: Male
  Weight: 158.759 kg

DRUGS (13)
  1. SYMLIN [Suspect]
     Indication: TYPE 2 DIABETES MELLITUS
     Dosage: 30 MCG; BID; SC, 15 MCG; BID; SC
     Route: 058
     Dates: start: 20070101, end: 20070101
  2. SYMLIN [Suspect]
     Indication: TYPE 2 DIABETES MELLITUS
     Dosage: 30 MCG; BID; SC, 15 MCG; BID; SC
     Route: 058
     Dates: start: 20070101, end: 20070101
  3. HUMULIN HPH [Concomitant]
  4. HUMULIN R [Concomitant]
  5. ACTOS [Concomitant]
  6. METFORMIN HCL [Concomitant]
  7. LISINOPRIL [Concomitant]
  8. LOPRESSOR [Concomitant]
  9. IMDUR [Concomitant]
  10. LASIX [Concomitant]
  11. ZAROXOLYN [Concomitant]
  12. ALDACTONE [Concomitant]
  13. THYROID TAB [Concomitant]

REACTIONS (2)
  - ANOREXIA [None]
  - NAUSEA [None]
